FAERS Safety Report 12925351 (Version 2)
Quarter: 2018Q1

REPORT INFORMATION
  Report Type: Spontaneous
  Country: US (occurrence: US)
  Receive Date: 20161108
  Receipt Date: 20180201
  Transmission Date: 20180508
  Serious: No
  Sender: FDA-Public Use
  Company Number: US-SA-2016SA149927

PATIENT
  Age: 82 Year
  Sex: Male

DRUGS (2)
  1. ALIROCUMAB PREFILLED PEN [Suspect]
     Active Substance: ALIROCUMAB
     Dates: start: 20160713
  2. PRALUENT [Suspect]
     Active Substance: ALIROCUMAB
     Route: 058
     Dates: start: 20160713

REACTIONS (7)
  - Increased tendency to bruise [Unknown]
  - Diarrhoea [Unknown]
  - Abdominal pain [Unknown]
  - Ocular discomfort [Unknown]
  - Muscular weakness [Unknown]
  - Injection site bruising [Unknown]
  - Anxiety [Unknown]

NARRATIVE: CASE EVENT DATE: 2016
